FAERS Safety Report 14678409 (Version 2)
Quarter: 2018Q2

REPORT INFORMATION
  Report Type: Spontaneous
  Country: JP (occurrence: JP)
  Receive Date: 20180326
  Receipt Date: 20180503
  Transmission Date: 20180711
  Serious: Yes (Hospitalization, Other)
  Sender: FDA-Public Use
  Company Number: JP-ACTELION-A-CH2018-166021

PATIENT
  Age: 57 Year
  Sex: Female
  Weight: 51.7 kg

DRUGS (12)
  1. PREDONINE [Concomitant]
     Active Substance: PREDNISOLONE
  2. TAKECAB [Concomitant]
     Active Substance: VONOPRAZAN FUMURATE
  3. AVAPRO [Concomitant]
     Active Substance: IRBESARTAN
  4. OPSUMIT [Suspect]
     Active Substance: MACITENTAN
     Indication: PULMONARY ARTERIAL HYPERTENSION
     Dosage: 10 MG, OD
     Route: 048
     Dates: start: 20170720
  5. LOXONIN [Suspect]
     Active Substance: LOXOPROFEN SODIUM
     Indication: RHEUMATOID ARTHRITIS
     Dosage: 60 MG, QD
     Route: 048
  6. ONEALFA [Concomitant]
     Active Substance: ALFACALCIDOL
  7. UPTRAVI [Suspect]
     Active Substance: SELEXIPAG
     Indication: PULMONARY ARTERIAL HYPERTENSION
     Dosage: 0.2 MG, QD
     Route: 048
     Dates: start: 20170731
  8. ADCIRCA [Suspect]
     Active Substance: TADALAFIL
     Indication: PULMONARY ARTERIAL HYPERTENSION
     Dosage: 20 MG, BID
     Route: 065
     Dates: start: 20170721
  9. MAINTATE [Concomitant]
     Active Substance: BISOPROLOL FUMARATE
  10. FUROSEMIDE. [Concomitant]
     Active Substance: FUROSEMIDE
  11. ALLOPURINOL. [Concomitant]
     Active Substance: ALLOPURINOL
  12. SPIRONOLACTONE. [Concomitant]
     Active Substance: SPIRONOLACTONE

REACTIONS (6)
  - Headache [Recovering/Resolving]
  - Enteritis infectious [Recovering/Resolving]
  - Diarrhoea [Recovered/Resolved]
  - Gastrointestinal haemorrhage [Recovering/Resolving]
  - Anaemia [Recovering/Resolving]
  - Malaise [Recovered/Resolved]

NARRATIVE: CASE EVENT DATE: 20170901
